FAERS Safety Report 25511372 (Version 1)
Quarter: 2025Q3

REPORT INFORMATION
  Report Type: Spontaneous
  Country: US (occurrence: None)
  Receive Date: 20250703
  Receipt Date: 20250703
  Transmission Date: 20251021
  Serious: Yes (Disabling)
  Sender: FDA-CTU
  Company Number: None

PATIENT
  Age: 59 Year
  Sex: Female
  Weight: 65.25 kg

DRUGS (28)
  1. QULIPTA [Suspect]
     Active Substance: ATOGEPANT
     Indication: Migraine
     Dosage: FREQUENCY : AT BEDTIME;?
     Route: 048
     Dates: start: 20250528, end: 20250623
  2. AJOVY [Suspect]
     Active Substance: FREMANEZUMAB-VFRM
  3. AIMOVIG [Suspect]
     Active Substance: ERENUMAB-AOOE
  4. ESTROGENS [Concomitant]
     Active Substance: ESTROGENS
  5. PROGESTERONE [Concomitant]
     Active Substance: PROGESTERONE
  6. TESTOSTERONE [Concomitant]
     Active Substance: TESTOSTERONE
  7. PRASTERONE [Concomitant]
     Active Substance: PRASTERONE
  8. HYDROCORTISONE [Concomitant]
     Active Substance: HYDROCORTISONE
  9. NP-THYROID [Concomitant]
  10. LEVOTHYROXINE [Concomitant]
     Active Substance: LEVOTHYROXINE
  11. MINOXIDIL [Concomitant]
     Active Substance: MINOXIDIL
  12. SUMATRIPTAN [Concomitant]
     Active Substance: SUMATRIPTAN
  13. NARATRIPTAN [Concomitant]
     Active Substance: NARATRIPTAN HYDROCHLORIDE
  14. KETAMINE [Concomitant]
     Active Substance: KETAMINE
  15. NYSTATIN [Concomitant]
     Active Substance: NYSTATIN
  16. VITAMINS [Concomitant]
     Active Substance: VITAMINS
  17. Monolaurin B complex [Concomitant]
  18. MAGNESIUM [Concomitant]
     Active Substance: MAGNESIUM
  19. IODINE [Concomitant]
     Active Substance: IODINE
  20. LITHIUM OROTATE [Concomitant]
     Active Substance: LITHIUM OROTATE
  21. Glucosamine condroitin [Concomitant]
  22. FISH OIL [Concomitant]
     Active Substance: FISH OIL
  23. COENZYME Q10 [Concomitant]
     Active Substance: DIETARY SUPPLEMENT\UBIDECARENONE
  24. VITAMIN E [Concomitant]
     Active Substance: .ALPHA.-TOCOPHEROL
  25. VITAMIN A [Concomitant]
     Active Substance: VITAMIN A
  26. ZINC [Concomitant]
     Active Substance: ZINC
  27. Acidophilus supplements [Concomitant]
  28. Bergerine [Concomitant]

REACTIONS (9)
  - Affective disorder [None]
  - Pain [None]
  - Sleep disorder [None]
  - Arthralgia [None]
  - Hot flush [None]
  - Weight increased [None]
  - Depression [None]
  - Decreased interest [None]
  - Alopecia [None]

NARRATIVE: CASE EVENT DATE: 20250611
